APPROVED DRUG PRODUCT: COSYNTROPIN
Active Ingredient: COSYNTROPIN
Strength: 0.25MG/VIAL
Dosage Form/Route: INJECTABLE;INJECTION
Application: A202147 | Product #001 | TE Code: AP
Applicant: SANDOZ INC
Approved: Jun 29, 2012 | RLD: No | RS: No | Type: RX